FAERS Safety Report 7460276-3 (Version None)
Quarter: 2011Q2

REPORT INFORMATION
  Report Type: 
  Country: None (occurrence: None)
  Receive Date: 20110427
  Receipt Date: 20110415
  Transmission Date: 20111010
  Serious: Yes (Hospitalization, Disabling, Other)
  Sender: FDA-Public Use
  Company Number: 2010SP042534

PATIENT
  Age: 37 Year
  Sex: Female
  Weight: 58.9676 kg

DRUGS (5)
  1. NUVARING [Suspect]
     Indication: CONTRACEPTION
     Dates: start: 20060601, end: 20080802
  2. SINGULAIR [Concomitant]
  3. NASONEX [Concomitant]
  4. MULTI-VITAMINS [Concomitant]
  5. ALBUTEROL [Concomitant]

REACTIONS (43)
  - ANXIETY [None]
  - IMPAIRED WORK ABILITY [None]
  - ASTHENIA [None]
  - NECK PAIN [None]
  - TRANSVERSE SINUS THROMBOSIS [None]
  - NEUTROPHIL COUNT INCREASED [None]
  - VIRAL INFECTION [None]
  - DYSPHONIA [None]
  - INTERNATIONAL NORMALISED RATIO DECREASED [None]
  - OCCIPITAL NEURALGIA [None]
  - OEDEMA PERIPHERAL [None]
  - DEHYDRATION [None]
  - CELLULITIS [None]
  - HYPOTHYROIDISM [None]
  - TREMOR [None]
  - HYPOAESTHESIA [None]
  - DEEP VEIN THROMBOSIS [None]
  - DEPRESSION [None]
  - BLOOD FIBRINOGEN INCREASED [None]
  - CEREBRAL INFARCTION [None]
  - HEADACHE [None]
  - HYPERCALCAEMIA [None]
  - HYPERTENSION [None]
  - ARTHROPOD BITE [None]
  - LYME DISEASE [None]
  - DRUG HYPERSENSITIVITY [None]
  - BODY TEMPERATURE INCREASED [None]
  - VOMITING [None]
  - JUGULAR VEIN THROMBOSIS [None]
  - MIGRAINE [None]
  - BLOOD CHOLESTEROL INCREASED [None]
  - DIZZINESS [None]
  - CEREBRAL HAEMORRHAGE [None]
  - MUSCULOSKELETAL STIFFNESS [None]
  - SUPERIOR SAGITTAL SINUS THROMBOSIS [None]
  - HYPOVOLAEMIA [None]
  - CEREBROVASCULAR ACCIDENT [None]
  - VISUAL IMPAIRMENT [None]
  - WHITE BLOOD CELL COUNT INCREASED [None]
  - HYPERCOAGULATION [None]
  - CEREBRAL ISCHAEMIA [None]
  - ASTHMA [None]
  - TENSION HEADACHE [None]
